FAERS Safety Report 12900056 (Version 1)
Quarter: 2016Q4

REPORT INFORMATION
  Report Type: Spontaneous
  Country: PT (occurrence: PT)
  Receive Date: 20161101
  Receipt Date: 20161101
  Transmission Date: 20170207
  Serious: No
  Sender: FDA-Public Use
  Company Number: PT-TOLMAR, INC.-2016PT006312

PATIENT
  Sex: Female

DRUGS (1)
  1. ELIGARD [Suspect]
     Active Substance: LEUPROLIDE ACETATE
     Indication: PRECOCIOUS PUBERTY
     Dosage: 7.5 MG, UNK
     Route: 058

REACTIONS (4)
  - Intercepted medication error [Unknown]
  - Product substitution issue [Unknown]
  - Product use issue [Unknown]
  - Product availability issue [Unknown]
